FAERS Safety Report 9299360 (Version 2)
Quarter: 2013Q2

REPORT INFORMATION
  Report Type: Spontaneous
  Country: US (occurrence: US)
  Receive Date: 20130520
  Receipt Date: 20130605
  Transmission Date: 20140414
  Serious: Yes (Hospitalization, Other)
  Sender: FDA-Public Use
  Company Number: US-B.I. PHARMACEUTICALS,INC./RIDGEFIELD-2013-BI-13731BP

PATIENT
  Age: 80 Year
  Sex: Male
  Weight: 81.65 kg

DRUGS (13)
  1. PRADAXA [Suspect]
     Indication: ANTICOAGULANT THERAPY
     Dosage: 300 MG
     Route: 048
     Dates: start: 20110223, end: 20110603
  2. PRADAXA [Suspect]
     Indication: ATRIAL FIBRILLATION
  3. FUROSEMIDE [Concomitant]
     Dosage: 40 MG
     Route: 048
  4. SIMVASTATIN [Concomitant]
     Dosage: 20 MG
     Route: 048
  5. DIGOXIN [Concomitant]
     Dosage: 0.125 MG
     Route: 048
  6. CALCIDOL [Concomitant]
     Dosage: 0.25 MG
     Route: 048
  7. LANTUS [Concomitant]
     Dosage: 68 U
     Route: 058
  8. POTASSIUM [Concomitant]
     Dosage: 60 MEQ
     Route: 048
  9. LEVOTHYROXINE [Concomitant]
     Dosage: 112 MCG
     Route: 048
  10. METOPROLOL SUCCINATE [Concomitant]
     Dosage: 50 MG
     Route: 048
  11. ISOSORBIDE DINITRATE [Concomitant]
     Dosage: 60 MG
     Route: 048
  12. ALLOPURINOL [Concomitant]
     Dosage: 200 MG
     Route: 048
  13. ZETIA [Concomitant]
     Dosage: 10 MG
     Route: 048

REACTIONS (2)
  - Gastrointestinal haemorrhage [Unknown]
  - Shock haemorrhagic [Unknown]
